FAERS Safety Report 20919975 (Version 3)
Quarter: 2022Q4

REPORT INFORMATION
  Report Type: Spontaneous
  Country: US (occurrence: US)
  Receive Date: 20220606
  Receipt Date: 20221006
  Transmission Date: 20230113
  Serious: Yes (Other)
  Sender: FDA-Public Use
  Company Number: US-MLMSERVICE-20220526-3575869-1

PATIENT
  Age: 58 Year
  Sex: Female

DRUGS (6)
  1. PEGFILGRASTIM [Suspect]
     Active Substance: PEGFILGRASTIM
     Indication: Chemotherapy side effect prophylaxis
     Dosage: 6 MG
     Dates: start: 2021, end: 2021
  2. FLUOROURACIL [Concomitant]
     Active Substance: FLUOROURACIL
     Indication: Small intestine carcinoma metastatic
     Dosage: CONTINUOUS FOR INFUSION PER DAY FOR 46 H
     Dates: start: 2021
  3. BEVACIZUMAB [Concomitant]
     Active Substance: BEVACIZUMAB
     Indication: Small intestine carcinoma metastatic
     Dosage: 5 MG/KG
     Dates: start: 2021
  4. IRINOTECAN [Concomitant]
     Active Substance: IRINOTECAN
     Indication: Small intestine carcinoma metastatic
     Dosage: 165 MG/M2, CYCLIC
     Dates: start: 2021
  5. LEUCOVORIN [Concomitant]
     Active Substance: LEUCOVORIN
     Indication: Small intestine carcinoma metastatic
     Dosage: 200 MG/M2, CYCLIC
     Dates: start: 2021
  6. OXALIPLATIN [Concomitant]
     Active Substance: OXALIPLATIN
     Indication: Small intestine carcinoma metastatic
     Dosage: 85 MG/M2, CYCLIC
     Dates: start: 2021

REACTIONS (1)
  - Arteritis [Recovered/Resolved]

NARRATIVE: CASE EVENT DATE: 20210101
